FAERS Safety Report 4665383-6 (Version None)
Quarter: 2005Q2

REPORT INFORMATION
  Report Type: 
  Country: None (occurrence: None)
  Receive Date: 20050517
  Receipt Date: 20050316
  Transmission Date: 20051028
  Serious: No
  Sender: FDA-Public Use
  Company Number: S05-USA-01441-01

PATIENT
  Age: 86 Year
  Sex: Female

DRUGS (3)
  1. NAMENDA [Suspect]
     Indication: DEMENTIA ALZHEIMER'S TYPE
     Dosage: 10 MG BID PO
     Route: 048
     Dates: start: 20050116
  2. BLOOD PRESSURE MEDICATION (NOS) [Concomitant]
  3. VITAMINS [Concomitant]

REACTIONS (2)
  - CONFUSIONAL STATE [None]
  - VERTIGO [None]
